FAERS Safety Report 9829860 (Version 3)
Quarter: 2014Q1

REPORT INFORMATION
  Report Type: Spontaneous
  Country: JP (occurrence: JP)
  Receive Date: 20140120
  Receipt Date: 20140214
  Transmission Date: 20141002
  Serious: Yes (Other)
  Sender: FDA-Public Use
  Company Number: JP-ROCHE-1333217

PATIENT
  Age: 78 Year
  Sex: Female
  Weight: 60 kg

DRUGS (3)
  1. BONVIVA [Suspect]
     Indication: OSTEOPOROSIS
     Route: 042
     Dates: start: 20130905, end: 20131105
  2. LIMAPROST ALFADEX [Concomitant]
     Route: 048
     Dates: start: 201303, end: 201311
  3. TAKEPRON [Concomitant]
     Route: 048
     Dates: start: 201310, end: 201310

REACTIONS (1)
  - Hepatic function abnormal [Recovered/Resolved]
